FAERS Safety Report 8469478-0 (Version None)
Quarter: 2012Q2

REPORT INFORMATION
  Report Type: 
  Country: None (occurrence: None)
  Receive Date: 20120626
  Receipt Date: 20120621
  Transmission Date: 20120825
  Serious: Yes (Death)
  Sender: FDA-Public Use
  Company Number: DE-ACTELION-A-US2012-65834

PATIENT

DRUGS (2)
  1. VENTAVIS [Suspect]
     Indication: VASCULAR TEST
     Dosage: 20UG/2ML, 5 MIN.
     Route: 055
     Dates: start: 20120502, end: 20120502
  2. VISIPAQUE [Concomitant]

REACTIONS (2)
  - BRADYCARDIA [None]
  - BLOOD PRESSURE DECREASED [None]
